FAERS Safety Report 6541566-5 (Version None)
Quarter: 2010Q1

REPORT INFORMATION
  Report Type: 
  Country: None (occurrence: None)
  Receive Date: 20100119
  Receipt Date: 20100113
  Transmission Date: 20100710
  Serious: Yes (Hospitalization)
  Sender: FDA-Public Use
  Company Number: US-ROCHE-678500

PATIENT
  Sex: Female
  Weight: 66 kg

DRUGS (6)
  1. PEG-INTERFERON ALFA 2A (RO 25-8310) [Suspect]
     Dosage: LAST DOSE PRIOR TO SAE: 19 DECEMBER 2009, FORM: INJECTION, THERAPY PERMANENTLY DISCONTINUED.
     Route: 058
     Dates: start: 20091010, end: 20091222
  2. RIBAVIRIN [Suspect]
     Dosage: FORM: PILL, LAST DOSE PRIOR TO SAE: 19 DECEMBER 2009, THERAPY PERMANENTLY DISCONTINUED.
     Route: 048
     Dates: start: 20091010, end: 20091222
  3. PROCRIT [Concomitant]
     Dosage: TOTAL DAILY DOSE: 40,000 IU/WEEK
     Dates: start: 20091208
  4. ATENOLOL [Concomitant]
  5. AMLODIPINE [Concomitant]
  6. PHENERGAN HCL [Concomitant]
     Dosage: TDD REPORTED: 25 MG PRN.
     Dates: start: 20091014

REACTIONS (1)
  - CHOLECYSTITIS ACUTE [None]
